FAERS Safety Report 12486973 (Version 1)
Quarter: 2016Q2

REPORT INFORMATION
  Report Type: Spontaneous
  Country: US (occurrence: None)
  Receive Date: 20160621
  Receipt Date: 20160621
  Transmission Date: 20160815
  Serious: Yes (Hospitalization, Other)
  Sender: FDA-Public Use
  Company Number: None

PATIENT
  Sex: Female

DRUGS (4)
  1. KEPPRA [Concomitant]
     Active Substance: LEVETIRACETAM
  2. MULTIVITAMINS [Concomitant]
     Active Substance: VITAMINS
  3. CLONOPINE [Concomitant]
  4. FYCOMPA [Suspect]
     Active Substance: PERAMPANEL
     Indication: EPILEPSY
     Route: 048
     Dates: start: 20160616, end: 20160618

REACTIONS (5)
  - Seizure [None]
  - Headache [None]
  - Abasia [None]
  - Nervous system disorder [None]
  - Mental disorder [None]

NARRATIVE: CASE EVENT DATE: 20160618
